FAERS Safety Report 8340836-8 (Version None)
Quarter: 2012Q2

REPORT INFORMATION
  Report Type: 
  Country: None (occurrence: None)
  Receive Date: 20120507
  Receipt Date: 20120502
  Transmission Date: 20120825
  Serious: Yes (Other)
  Sender: FDA-Public Use
  Company Number: MX-SANOFI-AVENTIS-2012SA031242

PATIENT
  Age: 72 Year
  Sex: Female
  Weight: 72 kg

DRUGS (4)
  1. PLAVIX [Suspect]
     Indication: VENOUS INSUFFICIENCY
     Route: 048
     Dates: start: 20090101
  2. LANTUS [Suspect]
     Indication: TYPE 2 DIABETES MELLITUS
     Route: 058
     Dates: start: 20050101
  3. METFORMIN HCL [Concomitant]
     Indication: TYPE 2 DIABETES MELLITUS
     Route: 048
     Dates: start: 19980101
  4. LOSARTAN POTASSIUM [Suspect]
     Route: 048
     Dates: start: 19980101

REACTIONS (7)
  - INJECTION SITE HAEMATOMA [None]
  - OFF LABEL USE [None]
  - INJECTION SITE PRURITUS [None]
  - INJECTION SITE HAEMORRHAGE [None]
  - SUBCUTANEOUS NODULE [None]
  - BLOOD PRESSURE INCREASED [None]
  - INJECTION SITE REACTION [None]
